FAERS Safety Report 7646816-X (Version None)
Quarter: 2011Q3

REPORT INFORMATION
  Report Type: 
  Country: None (occurrence: None)
  Receive Date: 20110729
  Receipt Date: 20110729
  Transmission Date: 20111222
  Serious: Yes (Life-Threatening, Hospitalization)
  Sender: FDA-Public Use
  Company Number: None

PATIENT
  Age: 75 Year
  Sex: Female
  Weight: 79.3795 kg

DRUGS (1)
  1. PRADAXA [Suspect]
     Indication: DRUG THERAPY
     Dosage: 2 X DAY
     Dates: start: 20110201

REACTIONS (4)
  - APHAGIA [None]
  - CHEMICAL BURN OF GASTROINTESTINAL TRACT [None]
  - BURNING SENSATION [None]
  - DYSPHAGIA [None]
